FAERS Safety Report 16213522 (Version 4)
Quarter: 2022Q1

REPORT INFORMATION
  Report Type: Report from Study
  Country: US (occurrence: US)
  Receive Date: 20190418
  Receipt Date: 20220302
  Transmission Date: 20220424
  Serious: Yes (Hospitalization)
  Sender: FDA-Public Use
  Company Number: US-PFIZER INC-2019038303

PATIENT
  Age: 75 Year
  Sex: Male
  Weight: 81.542 kg

DRUGS (16)
  1. PLACEBO [Suspect]
     Active Substance: UNSPECIFIED INGREDIENT
     Indication: Clostridium difficile immunisation
     Dosage: SINGLE DOSE
     Route: 030
     Dates: start: 20181015, end: 20181015
  2. NEURONTIN [Suspect]
     Active Substance: GABAPENTIN
     Indication: Neuropathy peripheral
     Dosage: 600 MG, 3X/DAY
     Route: 048
     Dates: start: 2008, end: 20190122
  3. CITROMA [Suspect]
     Active Substance: MAGNESIUM CITRATE
     Dosage: 296 ML (1.74GM/30ML)
     Route: 048
     Dates: end: 20190122
  4. FLEXERIL [Suspect]
     Active Substance: CYCLOBENZAPRINE HYDROCHLORIDE
     Indication: Muscle spasms
     Dosage: 10 MG, 2X/DAY
     Route: 048
     Dates: start: 2003, end: 20190122
  5. TRAZODONE [Suspect]
     Active Substance: TRAZODONE HYDROCHLORIDE
     Indication: Anxiety
     Dosage: 50 MG, DAILY (QHS)
     Route: 048
     Dates: start: 201801, end: 20190122
  6. LUNESTA [Suspect]
     Active Substance: ESZOPICLONE
     Dosage: UNK
     Dates: end: 20190122
  7. MIRALAX [Suspect]
     Active Substance: POLYETHYLENE GLYCOL 3350
     Dosage: UNK
     Dates: end: 20190122
  8. BENADRYL [Suspect]
     Active Substance: DIPHENHYDRAMINE HYDROCHLORIDE
     Dosage: UNK
     Dates: end: 20190122
  9. MORPHINE [Concomitant]
     Active Substance: MORPHINE
     Indication: Pain
     Dosage: 30 MG, 3X/DAY
     Route: 048
     Dates: start: 2003
  10. ZOLOFT [Concomitant]
     Active Substance: SERTRALINE HYDROCHLORIDE
     Indication: Bipolar disorder
     Dosage: 100 MG, 2X/DAY
     Route: 048
     Dates: start: 2017
  11. MIDODRINE [Concomitant]
     Active Substance: MIDODRINE
     Indication: Hypotension
     Dosage: 2.5 MG, 3X/DAY
     Route: 048
     Dates: start: 201711, end: 20190122
  12. CLONAZEPAM [Concomitant]
     Active Substance: CLONAZEPAM
     Indication: Anxiety
     Dosage: 0.5 MG, 1X/DAY
     Route: 048
     Dates: start: 201711
  13. ASPIRIN [Concomitant]
     Active Substance: ASPIRIN
     Indication: Prophylaxis
     Dosage: 81 MG, 1X/DAY
     Route: 048
     Dates: start: 201801
  14. DONEPEZIL [Concomitant]
     Active Substance: DONEPEZIL
     Indication: Amnesia
     Dosage: 5 MG, 1X/DAY
     Route: 048
     Dates: start: 201704
  15. FLOMAX [Concomitant]
     Active Substance: TAMSULOSIN HYDROCHLORIDE
     Indication: Benign prostatic hyperplasia
     Dosage: 0.4 MG, 1X/DAY
     Route: 048
     Dates: start: 2015
  16. HYDROCODONE [Concomitant]
     Active Substance: HYDROCODONE
     Indication: Pain
     Dosage: 100 MG, 4X/DAY
     Route: 048
     Dates: start: 201809

REACTIONS (1)
  - Syncope [Recovered/Resolved]

NARRATIVE: CASE EVENT DATE: 20190119
